FAERS Safety Report 7676869-4 (Version None)
Quarter: 2011Q3

REPORT INFORMATION
  Report Type: 
  Country: None (occurrence: None)
  Receive Date: 20110805
  Receipt Date: 20110728
  Transmission Date: 20111222
  Serious: Yes (Death)
  Sender: FDA-Public Use
  Company Number: OMPQ-NO-1107S-0731

PATIENT
  Age: 69 Year
  Sex: Male

DRUGS (1)
  1. OMNIPAQUE 70 [Suspect]
     Indication: PRODUCT USED FOR UNKNOWN INDICATION
     Dosage: SINGLE DOSE
     Dates: start: 20100101, end: 20100101

REACTIONS (2)
  - MULTI-ORGAN FAILURE [None]
  - LIVER DISORDER [None]
